FAERS Safety Report 5243435-X (Version None)
Quarter: 2007Q1

REPORT INFORMATION
  Report Type: 
  Country: None (occurrence: None)
  Receive Date: 20070221
  Receipt Date: 20070215
  Transmission Date: 20070707
  Serious: Yes (Death, Hospitalization)
  Sender: FDA-Public Use
  Company Number: GB-SANOFI-SYNTHELABO-F01200700175

PATIENT
  Sex: Male

DRUGS (8)
  1. UNSPECIFIED DRUG [Concomitant]
  2. DEXAMETHASONE [Concomitant]
     Dates: start: 20070125, end: 20070125
  3. DEXAMETHASONE [Concomitant]
     Dates: start: 20070125, end: 20070127
  4. ONDANSETRON HCL [Concomitant]
     Dates: start: 20070125, end: 20070125
  5. ONDANSETRON HCL [Concomitant]
     Dates: start: 20070124, end: 20070126
  6. LEUCOVORIN CALCIUM [Suspect]
     Route: 042
     Dates: start: 20070125, end: 20070126
  7. FLUOROURACIL [Suspect]
     Dosage: 4600 MG BOLUS THEN CONTINUOUS INFUSION
     Route: 042
     Dates: start: 20070125, end: 20070126
  8. OXALIPLATIN [Suspect]
     Indication: COLON CANCER
     Dosage: Q2W
     Route: 042
     Dates: start: 20070125, end: 20070125

REACTIONS (3)
  - ABDOMINAL ADHESIONS [None]
  - CONSTIPATION [None]
  - DEHYDRATION [None]
